FAERS Safety Report 7215934-2 (Version None)
Quarter: 2011Q1

REPORT INFORMATION
  Report Type: 
  Country: None (occurrence: None)
  Receive Date: 20110107
  Receipt Date: 20110103
  Transmission Date: 20110831
  Serious: Yes (Other)
  Sender: FDA-Public Use
  Company Number: US-PFIZER INC-2011001521

PATIENT
  Age: 33 Year
  Sex: Female
  Weight: 68.934 kg

DRUGS (1)
  1. ROBITUSSIN COUGH AND COLD CF [Suspect]
     Indication: COUGH
     Dosage: UNK
     Route: 048
     Dates: start: 20101213, end: 20101215

REACTIONS (2)
  - URTICARIA [None]
  - DYSPNOEA [None]
